FAERS Safety Report 7449481-X (Version None)
Quarter: 2011Q2

REPORT INFORMATION
  Report Type: 
  Country: None (occurrence: None)
  Receive Date: 20110502
  Receipt Date: 20110419
  Transmission Date: 20111010
  Serious: Yes (Other)
  Sender: FDA-Public Use
  Company Number: US-BAYER-2011-034742

PATIENT
  Age: 28 Year
  Sex: Female

DRUGS (4)
  1. DEPO [Suspect]
     Indication: PRODUCT USED FOR UNKNOWN INDICATION
  2. MIRENA [Suspect]
     Indication: CONTRACEPTION
     Dosage: 20 MCG/24HR, CONT
     Route: 015
     Dates: start: 20080101
  3. BUSPAR [Concomitant]
     Indication: ANXIETY
     Dosage: UNK
     Dates: start: 20110101
  4. XANAX [Concomitant]
     Indication: ANXIETY
     Dosage: UNK
     Dates: end: 20100901

REACTIONS (9)
  - DEVICE DISLOCATION [None]
  - PATIENT-DEVICE INCOMPATIBILITY [None]
  - ABDOMINAL DISTENSION [None]
  - ABDOMINAL PAIN [None]
  - CHOLECYSTECTOMY [None]
  - NAUSEA [None]
  - WEIGHT INCREASED [None]
  - HEADACHE [None]
  - ANXIETY [None]
